FAERS Safety Report 6173055-4 (Version None)
Quarter: 2009Q2

REPORT INFORMATION
  Report Type: 
  Country: None (occurrence: None)
  Receive Date: 20090430
  Receipt Date: 20090422
  Transmission Date: 20091009
  Serious: Yes (Death)
  Sender: FDA-Public Use
  Company Number: PH-BAXTER-2009BH007369

PATIENT
  Age: 60 Year
  Sex: Male

DRUGS (1)
  1. DIANEAL [Suspect]
     Indication: RENAL DISORDER
     Route: 033
     Dates: start: 20060628, end: 20090220

REACTIONS (1)
  - RENAL FAILURE CHRONIC [None]
